FAERS Safety Report 8370321-9 (Version None)
Quarter: 2012Q2

REPORT INFORMATION
  Report Type: 
  Country: None (occurrence: None)
  Receive Date: 20120518
  Receipt Date: 20110512
  Transmission Date: 20120825
  Serious: No
  Sender: FDA-Public Use
  Company Number: US-ASTRAZENECA-2011SE28735

PATIENT
  Sex: Male

DRUGS (5)
  1. PRILOSEC OTC [Suspect]
     Route: 048
     Dates: start: 20110501, end: 20110508
  2. ALLERGY MEDICATION [Concomitant]
     Dosage: UNKNOWN
  3. BLOOD SUGAR MEDICATION [Concomitant]
     Dosage: UNKNOWN
  4. CARDIAC THERAPY [Concomitant]
     Dosage: UNKNOWN
  5. BLOOD PRESSURE MEDICATION [Concomitant]
     Dosage: UNKNOWN

REACTIONS (4)
  - NAUSEA [None]
  - VOMITING [None]
  - THROAT TIGHTNESS [None]
  - DYSPHAGIA [None]
